FAERS Safety Report 25543601 (Version 1)
Quarter: 2025Q3

REPORT INFORMATION
  Report Type: Spontaneous
  Country: JP (occurrence: JP)
  Receive Date: 20250711
  Receipt Date: 20250711
  Transmission Date: 20251020
  Serious: Yes (Other)
  Sender: RANBAXY
  Company Number: JP-SUN PHARMACEUTICAL INDUSTRIES INC-2025R1-516498

PATIENT
  Sex: Male

DRUGS (2)
  1. FLECAINIDE [Suspect]
     Active Substance: FLECAINIDE
     Indication: Enterocolitis
     Route: 065
  2. SOTALOL [Suspect]
     Active Substance: SOTALOL
     Indication: Enterocolitis
     Route: 065

REACTIONS (1)
  - Drug resistance [Unknown]
